FAERS Safety Report 5450114-2 (Version None)
Quarter: 2007Q3

REPORT INFORMATION
  Report Type: 
  Country: None (occurrence: None)
  Receive Date: 20070912
  Receipt Date: 20070910
  Transmission Date: 20080115
  Serious: Yes (Other)
  Sender: FDA-Public Use
  Company Number: A0654866A

PATIENT
  Sex: Male

DRUGS (5)
  1. SEREVENT [Suspect]
     Indication: ASTHMA
     Dosage: 1PUFF TWICE PER DAY
     Route: 055
  2. UNSPECIFIED MEDICATION [Concomitant]
  3. PREDNISONE [Concomitant]
  4. SPIRIVA [Concomitant]
  5. UNSPECIFIED MEDICATION [Concomitant]

REACTIONS (6)
  - ASTHMA [None]
  - DYSPNOEA [None]
  - FATIGUE [None]
  - PEAK EXPIRATORY FLOW RATE DECREASED [None]
  - PHARMACEUTICAL PRODUCT COMPLAINT [None]
  - SLEEP DISORDER [None]
